FAERS Safety Report 13151816 (Version 9)
Quarter: 2018Q1

REPORT INFORMATION
  Report Type: Spontaneous
  Country: US (occurrence: US)
  Receive Date: 20170125
  Receipt Date: 20180323
  Transmission Date: 20180508
  Serious: Yes (Hospitalization)
  Sender: FDA-Public Use
  Company Number: US-ACTELION-A-US2017-148899

PATIENT
  Age: 13 Year
  Sex: Female
  Weight: 58.41 kg

DRUGS (18)
  1. LETAIRIS [Suspect]
     Active Substance: AMBRISENTAN
     Indication: PULMONARY ARTERIAL HYPERTENSION
     Dosage: 10 MG, QD
     Route: 065
  2. LANSOPRAZOLE. [Concomitant]
     Active Substance: LANSOPRAZOLE
  3. UPTRAVI [Suspect]
     Active Substance: SELEXIPAG
     Indication: PULMONARY ARTERIAL HYPERTENSION
     Dosage: 1000 MCG, BID
     Route: 048
     Dates: start: 20161209
  4. ALBUTEROL. [Concomitant]
     Active Substance: ALBUTEROL
  5. MULTIVITAMIN [Concomitant]
     Active Substance: VITAMINS
  6. UPTRAVI [Suspect]
     Active Substance: SELEXIPAG
     Dosage: 1400 MCG, BID
     Route: 048
  7. LETAIRIS [Suspect]
     Active Substance: AMBRISENTAN
     Dosage: 5 MG, QD
     Route: 048
     Dates: start: 20140521
  8. ADCIRCA [Concomitant]
     Active Substance: TADALAFIL
     Dosage: UNK
  9. UPTRAVI [Suspect]
     Active Substance: SELEXIPAG
     Dosage: 1200 MCG, BID
     Route: 048
     Dates: start: 20180311
  10. CLARITIN [Concomitant]
     Active Substance: LORATADINE
  11. ASPIRIN. [Concomitant]
     Active Substance: ASPIRIN
  12. REVATIO [Concomitant]
     Active Substance: SILDENAFIL CITRATE
  13. OXYGEN. [Concomitant]
     Active Substance: OXYGEN
  14. REMODULIN [Suspect]
     Active Substance: TREPROSTINIL
     Indication: PULMONARY ARTERIAL HYPERTENSION
     Dosage: 40 NG/KG, PER MIN
     Route: 058
     Dates: start: 20150911
  15. LASIX [Concomitant]
     Active Substance: FUROSEMIDE
  16. CETIRIZINE [Concomitant]
     Active Substance: CETIRIZINE HYDROCHLORIDE
  17. FLUTICASONE. [Concomitant]
     Active Substance: FLUTICASONE
  18. RANITIDINE. [Concomitant]
     Active Substance: RANITIDINE

REACTIONS (21)
  - Dehydration [Unknown]
  - Peripheral swelling [Unknown]
  - Sleep disorder [Not Recovered/Not Resolved]
  - Hypoaesthesia [Unknown]
  - Depression [Unknown]
  - Flushing [Unknown]
  - Headache [Not Recovered/Not Resolved]
  - Limb discomfort [Unknown]
  - Dizziness [Unknown]
  - Dyspnoea [Unknown]
  - Asthenia [Unknown]
  - Oxygen saturation decreased [Unknown]
  - Pulmonary arterial hypertension [Unknown]
  - Carbon dioxide decreased [Unknown]
  - Nausea [Unknown]
  - Body mass index decreased [Unknown]
  - Paraesthesia [Unknown]
  - Vomiting [Recovered/Resolved]
  - Cold sweat [Unknown]
  - Syncope [Unknown]
  - Pain in jaw [Recovering/Resolving]

NARRATIVE: CASE EVENT DATE: 201612
